FAERS Safety Report 7393181-1 (Version None)
Quarter: 2011Q2

REPORT INFORMATION
  Report Type: 
  Country: None (occurrence: None)
  Receive Date: 20110404
  Receipt Date: 20110324
  Transmission Date: 20111010
  Serious: Yes (Other)
  Sender: FDA-Public Use
  Company Number: JP-BAYER-2011-025951

PATIENT
  Sex: Male

DRUGS (4)
  1. UNCODEABLE ^UNCLASSIFIABLE^ [Concomitant]
     Indication: PNEUMONIA
     Dosage: DAILY DOSE 3 G
     Route: 048
     Dates: start: 20110318, end: 20110320
  2. AVELOX [Suspect]
     Indication: PNEUMONIA
     Dosage: 400 MG, QD
     Route: 048
     Dates: start: 20110318, end: 20110320
  3. COUGHCODE [Concomitant]
     Indication: PNEUMONIA
     Dosage: DAILY DOSE 6 DF
     Route: 048
     Dates: start: 20110318, end: 20110320
  4. SORELMON [Concomitant]
     Indication: PNEUMONIA
     Dosage: DAILY DOSE 75 MG
     Route: 048
     Dates: start: 20110318, end: 20110320

REACTIONS (2)
  - EPISTAXIS [None]
  - HAEMATOCHEZIA [None]
